FAERS Safety Report 11990951 (Version 6)
Quarter: 2017Q3

REPORT INFORMATION
  Report Type: Spontaneous
  Country: JP (occurrence: JP)
  Receive Date: 20160202
  Receipt Date: 20170726
  Transmission Date: 20171127
  Serious: Yes (Death, Hospitalization, Other)
  Sender: FDA-Public Use
  Company Number: JP-ALLERGAN-1602321US

PATIENT
  Age: 71 Year
  Sex: Male

DRUGS (1)
  1. BOTOX [Suspect]
     Active Substance: ONABOTULINUMTOXINA
     Indication: MUSCLE SPASMS
     Dosage: 200 UNITS, SINGLE
     Route: 030
     Dates: start: 20160121, end: 20160121

REACTIONS (6)
  - Acute respiratory distress syndrome [Fatal]
  - Cardiac failure [Unknown]
  - Hyporesponsive to stimuli [Unknown]
  - Hypothermia [Not Recovered/Not Resolved]
  - Malaise [Unknown]
  - Sputum retention [Not Recovered/Not Resolved]

NARRATIVE: CASE EVENT DATE: 20160123
